FAERS Safety Report 16224412 (Version 1)
Quarter: 2019Q2

REPORT INFORMATION
  Report Type: Spontaneous
  Country: ES (occurrence: ES)
  Receive Date: 20190422
  Receipt Date: 20190422
  Transmission Date: 20190711
  Serious: Yes (Other)
  Sender: FDA-Public Use
  Company Number: ES-PFIZER INC-2019165533

PATIENT
  Age: 55 Year
  Sex: Female

DRUGS (6)
  1. ALIPZA [Suspect]
     Active Substance: PITAVASTATIN
     Dosage: UNK
     Route: 048
     Dates: start: 2014
  2. RUBIFEN (FLURBIPROFEN) [Suspect]
     Active Substance: FLURBIPROFEN
     Dosage: UNK
     Route: 048
     Dates: start: 2014
  3. SECALIP [Suspect]
     Active Substance: FENOFIBRATE
     Dosage: UNK
     Route: 048
     Dates: start: 2014
  4. VANDRAL RETARD [Suspect]
     Active Substance: VENLAFAXINE HYDROCHLORIDE
     Dosage: UNK
     Route: 048
     Dates: start: 2014
  5. DUMIROX [Suspect]
     Active Substance: FLUVOXAMINE MALEATE
     Dosage: UNK
     Route: 048
     Dates: start: 2014
  6. PROLIA [Suspect]
     Active Substance: DENOSUMAB
     Dosage: UNK UNK, CYCLIC (EVERY 6 MONTHS)
     Route: 058
     Dates: start: 201405

REACTIONS (2)
  - Musculoskeletal pain [Not Recovered/Not Resolved]
  - Asthenia [Not Recovered/Not Resolved]

NARRATIVE: CASE EVENT DATE: 201504
